FAERS Safety Report 4465682-7 (Version None)
Quarter: 2004Q4

REPORT INFORMATION
  Report Type: 
  Country: None (occurrence: None)
  Receive Date: 20041004
  Receipt Date: 20040929
  Transmission Date: 20050328
  Serious: Yes (Hospitalization)
  Sender: FDA-Public Use
  Company Number: FR-MERCK-0409FRA00118

PATIENT
  Age: 90 Year
  Sex: Female

DRUGS (9)
  1. BROMAZEPAM [Concomitant]
     Indication: ANXIETY
     Route: 048
  2. CLOPIDOGREL BISULFATE [Concomitant]
     Route: 048
  3. FUROSEMIDE [Suspect]
     Indication: ISCHAEMIC CARDIOMYOPATHY
     Route: 048
     Dates: start: 20040831, end: 20040831
  4. LEVOTHYROXINE SODIUM [Concomitant]
     Indication: HYPOTHYROIDISM
     Route: 048
  5. COZAAR [Suspect]
     Route: 048
  6. NITROGLYCERIN [Suspect]
     Indication: ANGINA PECTORIS
     Route: 061
     Dates: end: 20040830
  7. NITROGLYCERIN [Suspect]
     Route: 061
     Dates: start: 20040831, end: 20040831
  8. NITROGLYCERIN [Suspect]
     Route: 061
     Dates: start: 20040901
  9. PENTOXIFYLLINE [Suspect]
     Indication: ARTERIAL DISORDER
     Route: 048
     Dates: end: 20040831

REACTIONS (3)
  - HYPOTENSION [None]
  - LOSS OF CONSCIOUSNESS [None]
  - MALAISE [None]
